FAERS Safety Report 11634857 (Version 2)
Quarter: 2015Q4

REPORT INFORMATION
  Report Type: Spontaneous
  Country: JP (occurrence: JP)
  Receive Date: 20151015
  Receipt Date: 20151120
  Transmission Date: 20160304
  Serious: Yes (Other)
  Sender: FDA-Public Use
  Company Number: PHJP2015JP017599

PATIENT
  Age: 52 Year
  Sex: Female

DRUGS (5)
  1. TEGRETOL [Suspect]
     Active Substance: CARBAMAZEPINE
     Indication: EPILEPSY
     Dosage: 200 MG, UNK
     Route: 048
  2. GENINAX [Suspect]
     Active Substance: GARENOXACIN MESYLATE
     Indication: NASOPHARYNGITIS
     Dosage: UNK
     Route: 065
  3. TEGRETOL [Suspect]
     Active Substance: CARBAMAZEPINE
     Dosage: 600 MG, QD
     Route: 048
  4. TEGRETOL [Suspect]
     Active Substance: CARBAMAZEPINE
     Dosage: 400 MG, QD
     Route: 048
  5. ROCEPHIN [Suspect]
     Active Substance: CEFTRIAXONE SODIUM
     Indication: NASOPHARYNGITIS
     Dosage: UNK
     Route: 065

REACTIONS (3)
  - Interstitial lung disease [Recovered/Resolved]
  - Asthma [Unknown]
  - Nasopharyngitis [Unknown]
